FAERS Safety Report 9896031 (Version 2)
Quarter: 2014Q1

REPORT INFORMATION
  Report Type: Spontaneous
  Country: US (occurrence: US)
  Receive Date: 20140213
  Receipt Date: 20140213
  Transmission Date: 20141002
  Serious: No
  Sender: FDA-Public Use
  Company Number: US-BRISTOL-MYERS SQUIBB COMPANY-18799874

PATIENT
  Age: 68 Year
  Sex: Female
  Weight: 67.12 kg

DRUGS (11)
  1. ABATACEPT SUBQ INJECTION 125MG/ML [Suspect]
     Indication: RHEUMATOID ARTHRITIS
     Dosage: LAST INJECTION WAS ON 10APR2013
     Route: 058
  2. OXYCODONE [Concomitant]
  3. DIAZEPAM [Concomitant]
  4. FOLIC ACID [Concomitant]
  5. METHOTREXATE [Concomitant]
  6. METHYLPREDNISOLONE [Concomitant]
  7. COQ10 [Concomitant]
  8. VITAMIN B [Concomitant]
  9. VITAMIN D3 [Concomitant]
  10. HYDROCODONE [Concomitant]
  11. FISH OIL [Concomitant]

REACTIONS (1)
  - Drug ineffective [Unknown]
